FAERS Safety Report 5759657-5 (Version None)
Quarter: 2008Q2

REPORT INFORMATION
  Report Type: 
  Country: None (occurrence: None)
  Receive Date: 20080605
  Receipt Date: 20080603
  Transmission Date: 20081010
  Serious: Yes (Other)
  Sender: FDA-Public Use
  Company Number: GB-ROCHE-568098

PATIENT
  Sex: Male
  Weight: 92 kg

DRUGS (2)
  1. ORLISTAT [Suspect]
     Indication: OBESITY
     Route: 048
     Dates: start: 20071015, end: 20080520
  2. UNSPECIFIED MEDICATIONS [Concomitant]

REACTIONS (1)
  - NEOPLASM [None]
